FAERS Safety Report 17823656 (Version 3)
Quarter: 2020Q3

REPORT INFORMATION
  Report Type: Spontaneous
  Country: US (occurrence: US)
  Receive Date: 20200526
  Receipt Date: 20200707
  Transmission Date: 20201102
  Serious: Yes (Other)
  Sender: FDA-Public Use
  Company Number: US-PFIZER INC-2016554221

PATIENT
  Age: 68 Year
  Sex: Male

DRUGS (18)
  1. TUMS EX [Concomitant]
     Active Substance: CALCIUM CARBONATE
     Dosage: 2 DF, (300 MG (750 MG) TABLET, SIG: TAKE 2 TABLET BY MOUTH AS DIRECTED)
     Route: 048
     Dates: start: 20150304
  2. MIRALAX [Concomitant]
     Active Substance: POLYETHYLENE GLYCOL 3350
     Dosage: 17 G, 1X/DAY (DISSOLVED IN WATER ONCE A DAY)
     Dates: start: 20160725
  3. RENA?VITE [Concomitant]
     Active Substance: ASCORBIC ACID\BIOTIN\CALCIUM PANTOTHENATE\CYANOCOBALAMIN\FOLIC ACID\NIACINAMIDE\PYRIDOXINE HYDROCHLORIDE\RIBOFLAVIN\THIAMINE MONONITRATE
     Dosage: 0.8 MG, 1X/DAY
     Route: 048
     Dates: start: 20160725
  4. METOPROLOL TARTRATE. [Concomitant]
     Active Substance: METOPROLOL TARTRATE
     Dosage: UNK, 2X/DAY (TAKE 1/2 TABLET BY MOUTH TWICE A DAY)
     Route: 048
  5. RESTORIL [Concomitant]
     Active Substance: TEMAZEPAM
     Dosage: 30 MG, 1X/DAY (EVERY NIGHT)
     Route: 048
     Dates: start: 20130702
  6. CALCITRIOL. [Concomitant]
     Active Substance: CALCITRIOL
     Dosage: 0.25 UG (THREE TIMES A WEEK ON NON?DIALYSIS DAYS)
     Route: 048
  7. METOPROLOL TARTRATE. [Concomitant]
     Active Substance: METOPROLOL TARTRATE
     Dosage: UNK, 1X/DAY (25 MG TABLET, TAKE 1/4 TABLET)
     Route: 048
     Dates: start: 20161026
  8. METOPROLOL TARTRATE. [Concomitant]
     Active Substance: METOPROLOL TARTRATE
     Dosage: 25 MG, 1X/DAY
  9. KLONOPIN [Concomitant]
     Active Substance: CLONAZEPAM
     Dosage: 2 MG, 1X/DAY (1 TABLET BY MOUTH EVERY NIGHT)
     Route: 048
     Dates: start: 20130702
  10. ATIVAN [Concomitant]
     Active Substance: LORAZEPAM
     Dosage: 1 MG, AS NEEDED (TK 1 T PO Q 12 H PRN)
     Route: 048
     Dates: start: 20130702
  11. RENVELA [Concomitant]
     Active Substance: SEVELAMER CARBONATE
     Dosage: 4 DF,(3 TABLET BY MOUTH THREE TIMES A DAY WITH MEALS AND ONE TAB WITH SNACKS)
     Route: 048
     Dates: start: 20130702
  12. LYRICA [Suspect]
     Active Substance: PREGABALIN
     Indication: NEUROPATHY PERIPHERAL
     Dosage: 75 MG, TWICE A DAY
     Route: 048
     Dates: start: 20130702
  13. RENVELA [Concomitant]
     Active Substance: SEVELAMER CARBONATE
     Dosage: 800 MG, 3X/DAY (1 TABLET BY MOUTH THREE TIMES A DAY WITH MEALS)
     Route: 048
  14. NEPHROCAPS [Concomitant]
     Active Substance: ASCORBIC ACID\BIOTIN\CYANOCOBALAMIN\FOLIC ACID\NIACIN\PANTOTHENIC ACID\PYRIDOXINE\RIBOFLAVIN\THIAMINE
     Dosage: 1 MG, 1X/DAY
     Route: 048
     Dates: start: 20130702
  15. TUMS EX [Concomitant]
     Active Substance: CALCIUM CARBONATE
     Dosage: 2000 MG, DAILY
     Route: 048
  16. SENSIPAR [Concomitant]
     Active Substance: CINACALCET HYDROCHLORIDE
     Dosage: 90 MG, 1X/DAY (EVERY EVENING AS DIRECTED, NOTES: TAKE W/EVENING MEAL)
     Route: 048
     Dates: start: 20160107
  17. MUPIROCIN. [Concomitant]
     Active Substance: MUPIROCIN
     Dosage: UNK, 2X/DAY (APPLY 1 SMALL AMOUNT TO AFFECTED AREA TWICE A DAY)
     Route: 061
  18. OXYCODONE [Concomitant]
     Active Substance: OXYCODONE
     Indication: PAIN
     Dosage: 5 MG, AS NEEDED (1 TABLET BY MOUTH EVERY SIX HOURS AS NEEDED)
     Route: 048
     Dates: start: 20130702

REACTIONS (3)
  - Speech disorder [Unknown]
  - Lung disorder [Unknown]
  - Vocal cord paralysis [Unknown]
